FAERS Safety Report 14111814 (Version 1)
Quarter: 2017Q4

REPORT INFORMATION
  Report Type: Spontaneous
  Country: US (occurrence: US)
  Receive Date: 20171020
  Receipt Date: 20171020
  Transmission Date: 20180321
  Serious: No
  Sender: FDA-Public Use
  Company Number: None

PATIENT
  Age: 77 Year
  Sex: Male
  Weight: 99 kg

DRUGS (1)
  1. GLYBURIDE (AUROBINDO) [Suspect]
     Active Substance: GLYBURIDE
     Indication: TYPE 2 DIABETES MELLITUS
     Dosage: ?          QUANTITY:180 TABLET(S);?
     Route: 048
     Dates: start: 20171016

REACTIONS (1)
  - Product commingling [None]

NARRATIVE: CASE EVENT DATE: 20171016
